FAERS Safety Report 21570870 (Version 1)
Quarter: 2022Q4

REPORT INFORMATION
  Report Type: Spontaneous
  Country: GB (occurrence: GB)
  Receive Date: 20221109
  Receipt Date: 20221109
  Transmission Date: 20230113
  Serious: Yes (Other)
  Sender: FDA-Public Use
  Company Number: None

PATIENT
  Sex: Male

DRUGS (9)
  1. CARBOPLATIN [Suspect]
     Active Substance: CARBOPLATIN
     Indication: Product used for unknown indication
  2. PEMETREXED [Suspect]
     Active Substance: PEMETREXED
     Indication: Product used for unknown indication
  3. PEMBROLIZUMAB [Suspect]
     Active Substance: PEMBROLIZUMAB
     Indication: Product used for unknown indication
  4. DERMOL [Concomitant]
     Active Substance: BENZALKONIUM CHLORIDE\CHLORHEXIDINE HYDROCHLORIDE\ISOPROPYL MYRISTATE\PARAFFIN
     Dosage: 500 LOTION, APPLY TO SKIN OR USE AS?A SOAP SUBSTITUTE 500 ML
  5. CALCIPOTRIENE [Concomitant]
     Active Substance: CALCIPOTRIENE
     Dosage: 50MICROGRAMS/G OINTMENT?APPLY TWICE A DAY 60 GRAM
  6. BETAMETHASONE VALERATE [Concomitant]
     Active Substance: BETAMETHASONE VALERATE
     Dosage: 0.1% CREAM?APPLY THINLY TWICE A DAY 30 GRAM
  7. CYCLIZINE [Concomitant]
     Active Substance: CYCLIZINE
     Dosage: 50MG/1ML?SOLUTION FOR INJECTION AMPOULES 1 EIGHT HOURLY PRN SC/IM 60 AMPOULE
  8. LEVOMEPROMAZINE [Concomitant]
     Active Substance: LEVOMEPROMAZINE
     Dosage: ONCE DAILY 20 TABLET
  9. PROCHLORPERAZINE [Concomitant]
     Active Substance: PROCHLORPERAZINE
     Dosage: ONE TAB TDS 42 TABLET

REACTIONS (1)
  - Neutropenic sepsis [Unknown]
